FAERS Safety Report 8954489 (Version 1)
Quarter: 2012Q4

REPORT INFORMATION
  Report Type: 
  Country: US (occurrence: US)
  Receive Date: 20121207
  Receipt Date: 20121207
  Transmission Date: 20130627
  Serious: No
  Sender: FDA-Public Use
  Company Number: US-BAYER-2012-129037

PATIENT
  Age: 88 Year
  Sex: Female

DRUGS (2)
  1. ALEVE CAPLET/TABLET,MIDOL EXTENDED RELIEF CAPLET [Suspect]
     Indication: PAIN
     Dosage: 1 DF, PRN
     Route: 048
  2. NORCO [Concomitant]
     Dosage: UNK

REACTIONS (2)
  - Insomnia [Recovered/Resolved]
  - Drug ineffective [None]
